FAERS Safety Report 4398162-8 (Version None)
Quarter: 2004Q3

REPORT INFORMATION
  Report Type: 
  Country: None (occurrence: None)
  Receive Date: 20040714
  Receipt Date: 20040714
  Transmission Date: 20050211
  Serious: Yes (Hospitalization, Other)
  Sender: FDA-Public Use
  Company Number: None

PATIENT
  Age: 83 Year
  Sex: Male
  Weight: 83 kg

DRUGS (8)
  1. WARFARIN SODIUM [Suspect]
     Indication: ATRIAL FIBRILLATION
     Dosage: VARIED (~5 MG QD)
     Dates: start: 20040203, end: 20040205
  2. LASIX [Suspect]
     Indication: ATRIAL FIBRILLATION
     Dosage: 80 MG SQ BID
     Route: 058
     Dates: start: 20040128, end: 20040205
  3. POTASSIUM [Concomitant]
  4. METOPROLOL [Concomitant]
  5. METOLAZONE [Concomitant]
  6. DIGOXIN [Concomitant]
  7. ARICEPT [Concomitant]
  8. LASIX [Concomitant]

REACTIONS (5)
  - HAEMATURIA [None]
  - NECROSIS [None]
  - PETECHIAE [None]
  - RASH PAPULAR [None]
  - SUBCUTANEOUS HAEMATOMA [None]
